FAERS Safety Report 22105400 (Version 2)
Quarter: 2023Q1

REPORT INFORMATION
  Report Type: Spontaneous
  Country: GB (occurrence: GB)
  Receive Date: 20230317
  Receipt Date: 20230320
  Transmission Date: 20230418
  Serious: Yes (Life-Threatening, Hospitalization, Other)
  Sender: FDA-Public Use
  Company Number: GB-MHRA-MED-202302140555288990-WHFPJ

PATIENT
  Age: 79 Year
  Sex: Female
  Weight: 44 kg

DRUGS (11)
  1. XARELTO [Suspect]
     Active Substance: RIVAROXABAN
     Indication: Antiphospholipid syndrome
     Route: 048
     Dates: start: 2010
  2. CIPROFLOXACIN [Suspect]
     Active Substance: CIPROFLOXACIN
     Indication: Pseudomonas infection
     Dates: start: 20221126, end: 20221207
  3. CANDESARTAN [Concomitant]
     Active Substance: CANDESARTAN
     Indication: Adverse drug reaction
  4. CARBOCYSTEINE [Concomitant]
     Active Substance: CARBOCYSTEINE
     Indication: Adverse drug reaction
     Dates: start: 20221126
  5. CITALOPRAM [Concomitant]
     Active Substance: CITALOPRAM HYDROBROMIDE
     Indication: Adverse drug reaction
  6. LERCANIDIPINE [Concomitant]
     Active Substance: LERCANIDIPINE
     Indication: Adverse drug reaction
  7. MONTELUKAST [Concomitant]
     Active Substance: MONTELUKAST SODIUM
     Indication: Adverse drug reaction
  8. NEBIVOLOL [Concomitant]
     Active Substance: NEBIVOLOL
     Indication: Adverse drug reaction
  9. SERETIDE [Concomitant]
     Active Substance: FLUTICASONE PROPIONATE\SALMETEROL XINAFOATE
     Indication: Adverse drug reaction
  10. SPIRONOLACTONE [Concomitant]
     Active Substance: SPIRONOLACTONE
     Indication: Adverse drug reaction
  11. CLOPIDOGREL [Concomitant]
     Active Substance: CLOPIDOGREL BISULFATE
     Indication: Antiphospholipid syndrome
     Dates: start: 200206, end: 20230310

REACTIONS (28)
  - Medication error [Unknown]
  - Pain in extremity [Not Recovered/Not Resolved]
  - Peripheral swelling [Recovered/Resolved with Sequelae]
  - Arthralgia [Not Recovered/Not Resolved]
  - Fatigue [Not Recovered/Not Resolved]
  - Diarrhoea [Not Recovered/Not Resolved]
  - Muscle strain [Recovering/Resolving]
  - Nausea [Not Recovered/Not Resolved]
  - Abnormal loss of weight [Not Recovered/Not Resolved]
  - Joint swelling [Recovering/Resolving]
  - Muscle twitching [Not Recovered/Not Resolved]
  - Gastrointestinal haemorrhage [Recovering/Resolving]
  - Decreased appetite [Unknown]
  - Feeling cold [Unknown]
  - Alopecia [Unknown]
  - Headache [Unknown]
  - Asthenia [Unknown]
  - Myalgia [Unknown]
  - Neuralgia [Unknown]
  - Tendonitis [Unknown]
  - Productive cough [Unknown]
  - Cough [Unknown]
  - Back pain [Unknown]
  - Chest discomfort [Unknown]
  - Chest pain [Unknown]
  - Asthenia [Unknown]
  - Hot flush [Unknown]
  - Abdominal discomfort [Unknown]

NARRATIVE: CASE EVENT DATE: 20221129
